FAERS Safety Report 13288460 (Version 6)
Quarter: 2018Q2

REPORT INFORMATION
  Report Type: Report from Study
  Country: US (occurrence: US)
  Receive Date: 20170302
  Receipt Date: 20180504
  Transmission Date: 20180711
  Serious: Yes (Hospitalization, Other)
  Sender: FDA-Public Use
  Company Number: US-ACTELION-A-NJ2016-137479

PATIENT
  Age: 52 Year
  Sex: Female

DRUGS (19)
  1. OPSUMIT [Suspect]
     Active Substance: MACITENTAN
     Dosage: 10 MG, QD
     Route: 048
     Dates: start: 201702
  2. AMBRISENTAN [Suspect]
     Active Substance: AMBRISENTAN
     Dosage: UNK
     Route: 065
  3. REMODULIN [Concomitant]
     Active Substance: TREPROSTINIL
     Route: 058
  4. TYVASO [Concomitant]
     Active Substance: TREPROSTINIL
  5. WARFARIN [Concomitant]
     Active Substance: WARFARIN
  6. ALLOPURINOL. [Concomitant]
     Active Substance: ALLOPURINOL
  7. SYNTHROID [Concomitant]
     Active Substance: LEVOTHYROXINE SODIUM
  8. AMBRISENTAN [Suspect]
     Active Substance: AMBRISENTAN
     Indication: PRODUCT USED FOR UNKNOWN INDICATION
     Dosage: 10 MG, QD
     Route: 065
     Dates: start: 20120613
  9. PREDNISONE. [Concomitant]
     Active Substance: PREDNISONE
  10. UPTRAVI [Suspect]
     Active Substance: SELEXIPAG
     Indication: PULMONARY ARTERIAL HYPERTENSION
     Dosage: 1000 MCG, BID
     Route: 048
     Dates: start: 20170411, end: 20170425
  11. SPIRONOLACTONE. [Concomitant]
     Active Substance: SPIRONOLACTONE
  12. OPSUMIT [Suspect]
     Active Substance: MACITENTAN
     Indication: PULMONARY ARTERIAL HYPERTENSION
     Dosage: 10 MG, QD
     Route: 048
     Dates: start: 20150520
  13. MELOXICAM. [Concomitant]
     Active Substance: MELOXICAM
  14. BUMETANIDE. [Concomitant]
     Active Substance: BUMETANIDE
  15. UPTRAVI [Suspect]
     Active Substance: SELEXIPAG
     Dosage: 800 MCG, BID
     Route: 048
  16. POTASSIUM [Concomitant]
     Active Substance: POTASSIUM
  17. ASPIRIN. [Concomitant]
     Active Substance: ASPIRIN
  18. UPTRAVI [Suspect]
     Active Substance: SELEXIPAG
     Dosage: UNK
     Route: 048
  19. MAGNESIUM [Concomitant]
     Active Substance: MAGNESIUM

REACTIONS (16)
  - Constipation [Unknown]
  - Eructation [Recovered/Resolved]
  - Pain in extremity [Unknown]
  - Diarrhoea [Recovered/Resolved]
  - Back pain [Unknown]
  - Abdominal discomfort [Recovered/Resolved]
  - Neuropathy peripheral [Recovered/Resolved]
  - Inflammation [Recovered/Resolved]
  - Nausea [Unknown]
  - Pain in jaw [Unknown]
  - Arthralgia [Recovered/Resolved]
  - Myalgia [Not Recovered/Not Resolved]
  - Restlessness [Unknown]
  - Catheter site pain [Unknown]
  - Headache [Unknown]
  - Productive cough [Unknown]

NARRATIVE: CASE EVENT DATE: 20170411
